FAERS Safety Report 8485280-8 (Version None)
Quarter: 2012Q2

REPORT INFORMATION
  Report Type: 
  Country: None (occurrence: None)
  Receive Date: 20120627
  Receipt Date: 20120627
  Transmission Date: 20120825
  Serious: No
  Sender: FDA-Public Use
  Company Number: None

PATIENT
  Sex: Female

DRUGS (1)
  1. PREDNISOLONE ACETATE [Suspect]
     Dosage: 1 DROP QID R EYE
     Dates: start: 20120524, end: 20120529

REACTIONS (2)
  - PRODUCT SUBSTITUTION ISSUE [None]
  - HYPERSENSITIVITY [None]
